FAERS Safety Report 17758709 (Version 4)
Quarter: 2021Q3

REPORT INFORMATION
  Report Type: Spontaneous
  Country: CH (occurrence: CH)
  Receive Date: 20200507
  Receipt Date: 20210724
  Transmission Date: 20211014
  Serious: Yes (Other)
  Sender: FDA-Public Use
  Company Number: CH-ABBVIE-20K-151-3392070-00

PATIENT
  Age: 82 Year
  Sex: Male

DRUGS (9)
  1. PLAQUENIL [Interacting]
     Active Substance: HYDROXYCHLOROQUINE SULFATE
     Indication: COVID-19 PNEUMONIA
     Dosage: DAY 1
     Route: 048
     Dates: start: 20200327, end: 20200329
  2. KALETRA [Suspect]
     Active Substance: LOPINAVIR\RITONAVIR
     Indication: COVID-19 PNEUMONIA
     Dosage: DAY 1: 2X800/200MG
     Route: 048
     Dates: start: 20200329, end: 20200331
  3. ERYTHROMYCIN. [Interacting]
     Active Substance: ERYTHROMYCIN
     Indication: COVID-19 PNEUMONIA
     Route: 042
     Dates: start: 20200406, end: 20200407
  4. PLAQUENIL [Interacting]
     Active Substance: HYDROXYCHLOROQUINE SULFATE
     Dosage: DAY 3
     Route: 048
     Dates: start: 2020, end: 2020
  5. ACTEMRA [Concomitant]
     Active Substance: TOCILIZUMAB
     Indication: COVID-19 PNEUMONIA
     Route: 041
     Dates: start: 20200401, end: 20200402
  6. PLAQUENIL [Interacting]
     Active Substance: HYDROXYCHLOROQUINE SULFATE
     Dosage: DAY 2
     Route: 048
     Dates: start: 2020, end: 2020
  7. TAZOBAC [Concomitant]
     Active Substance: PIPERACILLIN SODIUM\TAZOBACTAM SODIUM
     Indication: PRODUCT USED FOR UNKNOWN INDICATION
     Dosage: 2.0GR / 0.25MG
     Dates: start: 20200402, end: 20200407
  8. KALETRA [Interacting]
     Active Substance: LOPINAVIR\RITONAVIR
     Dosage: 2X400/100 MG/DAY
     Route: 048
     Dates: start: 20200402, end: 20200407
  9. AMOXICILLIN/CLAVULANIC ACID [Concomitant]
     Active Substance: AMOXICILLIN\CLAVULANIC ACID
     Indication: COVID-19 PNEUMONIA

REACTIONS (4)
  - Drug interaction [Recovered/Resolved]
  - Electrocardiogram QT prolonged [Recovered/Resolved]
  - Diarrhoea [Unknown]
  - Off label use [Recovered/Resolved]

NARRATIVE: CASE EVENT DATE: 202003
